FAERS Safety Report 4755986-2 (Version None)
Quarter: 2005Q3

REPORT INFORMATION
  Report Type: 
  Country: None (occurrence: None)
  Receive Date: 20050826
  Receipt Date: 20050301
  Transmission Date: 20060218
  Serious: Yes (Death, Other)
  Sender: FDA-Public Use
  Company Number: USA-2005-0019115

PATIENT
  Age: 23 Year
  Sex: Male

DRUGS (3)
  1. OXYCONTIN [Suspect]
     Dosage: NASAL
     Route: 045
  2. MARIJUANA (CANNABIS) [Suspect]
     Dosage: INHALATION
     Route: 055
  3. ALCOHOL (ETHANOL) [Suspect]
     Dosage: ORAL
     Route: 048

REACTIONS (5)
  - ACCIDENTAL OVERDOSE [None]
  - CARDIAC ARREST [None]
  - COMA [None]
  - MULTIPLE DRUG OVERDOSE ACCIDENTAL [None]
  - POLYSUBSTANCE ABUSE [None]
